FAERS Safety Report 16316683 (Version 1)
Quarter: 2019Q2

REPORT INFORMATION
  Report Type: Report from Study
  Country: GT (occurrence: GT)
  Receive Date: 20190515
  Receipt Date: 20190515
  Transmission Date: 20190711
  Serious: Yes (Death, Hospitalization, Other)
  Sender: FDA-Public Use
  Company Number: PHHY2019GT108740

PATIENT
  Sex: Male

DRUGS (1)
  1. VYMADA [Suspect]
     Active Substance: SACUBITRIL\VALSARTAN
     Indication: PRODUCT USED FOR UNKNOWN INDICATION
     Dosage: 1 DF (SACUBITRIL 24MG, VALSARTAN 26 MG), UNK
     Route: 065

REACTIONS (5)
  - Death [Fatal]
  - Ejection fraction decreased [Unknown]
  - Diabetes mellitus [Unknown]
  - Blood pressure abnormal [Unknown]
  - Cardiac disorder [Unknown]
